FAERS Safety Report 7792300-2 (Version None)
Quarter: 2011Q4

REPORT INFORMATION
  Report Type: 
  Country: None (occurrence: None)
  Receive Date: 20111003
  Receipt Date: 20110927
  Transmission Date: 20120403
  Serious: Yes (Other)
  Sender: FDA-Public Use
  Company Number: PHHY2011CA81868

PATIENT
  Sex: Male

DRUGS (2)
  1. ZOLEDRONOC ACID [Suspect]
     Indication: OSTEOPOROSIS
     Dosage: UNK UKN, UNK
     Route: 042
     Dates: start: 20110818
  2. IBUPROFEN (ADVIL) [Concomitant]
     Dosage: UNK UKN, UNK

REACTIONS (8)
  - MALAISE [None]
  - TREMOR [None]
  - ARTHRALGIA [None]
  - PYREXIA [None]
  - INFLUENZA LIKE ILLNESS [None]
  - SPEECH DISORDER [None]
  - OEDEMA PERIPHERAL [None]
  - CHILLS [None]
